FAERS Safety Report 21673067 (Version 1)
Quarter: 2022Q4

REPORT INFORMATION
  Report Type: Report from Study
  Country: IL (occurrence: IL)
  Receive Date: 20221202
  Receipt Date: 20221202
  Transmission Date: 20230112
  Serious: Yes (Other)
  Sender: FDA-Public Use
  Company Number: IL-002147023-NVSC2022IL265155

PATIENT
  Age: 62 Year
  Sex: Female
  Weight: 62 kg

DRUGS (1)
  1. KISQALI [Suspect]
     Active Substance: RIBOCICLIB
     Indication: Breast cancer
     Dosage: 600 MG, QD
     Route: 048
     Dates: start: 20220828

REACTIONS (4)
  - Weight decreased [Not Recovered/Not Resolved]
  - Diarrhoea [Recovering/Resolving]
  - Fatigue [Not Recovered/Not Resolved]
  - Asthenia [Not Recovered/Not Resolved]

NARRATIVE: CASE EVENT DATE: 20221123
